FAERS Safety Report 8006438-8 (Version None)
Quarter: 2011Q4

REPORT INFORMATION
  Report Type: 
  Country: None (occurrence: None)
  Receive Date: 20111226
  Receipt Date: 20111101
  Transmission Date: 20120403
  Serious: Yes (Hospitalization, Other)
  Sender: FDA-Public Use
  Company Number: US-PURDUE-USA-2011-0079910

PATIENT
  Sex: Female

DRUGS (1)
  1. OXYCONTIN [Suspect]
     Indication: PANCREATITIS CHRONIC
     Dosage: UNK
     Dates: start: 20030101, end: 20050101

REACTIONS (3)
  - MYOCARDIAL INFARCTION [None]
  - DRUG DEPENDENCE [None]
  - CONVULSION [None]
